FAERS Safety Report 7314257-0 (Version None)
Quarter: 2011Q1

REPORT INFORMATION
  Report Type: 
  Country: None (occurrence: None)
  Receive Date: 20110225
  Receipt Date: 20100726
  Transmission Date: 20110831
  Serious: No
  Sender: FDA-Public Use
  Company Number: US-MYLANLABS-2010S1011298

PATIENT
  Age: 17 Year
  Sex: Female
  Weight: 52.16 kg

DRUGS (2)
  1. AMNESTEEM [Suspect]
     Indication: ACNE
     Route: 048
     Dates: start: 20100503, end: 20100518
  2. YAZ /01502501/ [Concomitant]
     Route: 048

REACTIONS (3)
  - DEPRESSION [None]
  - MYALGIA [None]
  - BACK PAIN [None]
